FAERS Safety Report 14969382 (Version 1)
Quarter: 2018Q2

REPORT INFORMATION
  Report Type: Spontaneous
  Country: US (occurrence: US)
  Receive Date: 20180511
  Receipt Date: 20180511
  Transmission Date: 20180711
  Serious: No
  Sender: FDA-Public Use
  Company Number: None

PATIENT
  Age: 59 Year
  Sex: Female

DRUGS (1)
  1. VOTRIENT [Suspect]
     Active Substance: PAZOPANIB HYDROCHLORIDE

REACTIONS (4)
  - Dehydration [None]
  - Blood potassium decreased [None]
  - Blood magnesium decreased [None]
  - Gastritis [None]

NARRATIVE: CASE EVENT DATE: 20170429
